FAERS Safety Report 5824820-1 (Version None)
Quarter: 2008Q3

REPORT INFORMATION
  Report Type: 
  Country: None (occurrence: None)
  Receive Date: 20080728
  Receipt Date: 20080710
  Transmission Date: 20090109
  Serious: No
  Sender: FDA-Public Use
  Company Number: US-BOEHRINGER INGELHEIM GMBH, GERMANY-2008-BP-09735BP

PATIENT
  Sex: Female

DRUGS (6)
  1. SPIRIVA [Suspect]
     Indication: EMPHYSEMA
     Route: 055
     Dates: start: 20080501, end: 20080601
  2. TOPROL-XL [Concomitant]
  3. NORVASC [Concomitant]
  4. TRIAMTERENE AND HYDROCHLOROTHIAZIDE [Concomitant]
     Dosage: 1 DAILY
  5. LORAZEPAM [Concomitant]
  6. TRAVATAN [Concomitant]
     Route: 031

REACTIONS (5)
  - DRY MOUTH [None]
  - GLAUCOMA [None]
  - MUSCULOSKELETAL STIFFNESS [None]
  - URINARY TRACT INFECTION [None]
  - VISUAL ACUITY REDUCED [None]
